FAERS Safety Report 20074613 (Version 1)
Quarter: 2021Q4

REPORT INFORMATION
  Report Type: Spontaneous
  Country: BG (occurrence: BG)
  Receive Date: 20211116
  Receipt Date: 20211116
  Transmission Date: 20220303
  Serious: Yes (Death, Other)
  Sender: FDA-Public Use
  Company Number: BG-PFIZER INC-202101511452

PATIENT
  Age: 57 Year
  Sex: Female
  Weight: 75 kg

DRUGS (1)
  1. MYLOTARG [Suspect]
     Active Substance: GEMTUZUMAB OZOGAMICIN
     Indication: Acute myeloid leukaemia
     Dosage: UNK
     Dates: start: 202110

REACTIONS (1)
  - Haemorrhagic stroke [Fatal]
